FAERS Safety Report 7636160-9 (Version None)
Quarter: 2011Q3

REPORT INFORMATION
  Report Type: 
  Country: None (occurrence: None)
  Receive Date: 20110726
  Receipt Date: 20110720
  Transmission Date: 20111222
  Serious: Yes (Other)
  Sender: FDA-Public Use
  Company Number: US-ROCHE-791424

PATIENT
  Age: 36 Year
  Sex: Male
  Weight: 86.2 kg

DRUGS (3)
  1. KLONOPIN [Suspect]
     Indication: SLEEP DISORDER THERAPY
     Route: 048
     Dates: start: 20080101
  2. CHANTIX [Suspect]
     Route: 048
     Dates: start: 20070101, end: 20070101
  3. CHANTIX [Suspect]
     Route: 048
     Dates: start: 20110705

REACTIONS (4)
  - NON-CARDIAC CHEST PAIN [None]
  - DRUG INEFFECTIVE [None]
  - ABDOMINAL DISTENSION [None]
  - CHEST PAIN [None]
